FAERS Safety Report 4537990-2 (Version None)
Quarter: 2004Q4

REPORT INFORMATION
  Report Type: 
  Country: None (occurrence: None)
  Receive Date: 20041221
  Receipt Date: 20041210
  Transmission Date: 20050328
  Serious: Yes (Other)
  Sender: FDA-Public Use
  Company Number: THYM-10385

PATIENT
  Age: 28 Year
  Sex: Male

DRUGS (5)
  1. THYMOGLOBULIN [Suspect]
     Indication: PROPHYLAXIS AGAINST TRANSPLANT REJECTION
  2. MYCOPHENOLATE MOFETIL [Concomitant]
  3. CYCLOSPORINE [Concomitant]
  4. FLUDARABIINE [Concomitant]
  5. TOTAL BODY IRRADIATION [Concomitant]

REACTIONS (7)
  - CARDIAC FAILURE CONGESTIVE [None]
  - DISEASE RECURRENCE [None]
  - DRUG TOXICITY [None]
  - HERPES ZOSTER [None]
  - RENAL FAILURE [None]
  - SERUM SICKNESS [None]
  - TOXIC DILATATION OF COLON [None]
